FAERS Safety Report 17273193 (Version 1)
Quarter: 2020Q1

REPORT INFORMATION
  Report Type: Spontaneous
  Country: US (occurrence: US)
  Receive Date: 20191224
  Receipt Date: 20191224
  Transmission Date: 20200409
  Serious: No
  Sender: FDA-Public Use
  Company Number: None

PATIENT
  Age: 58 Year
  Sex: Male

DRUGS (1)
  1. VOSEVI [Suspect]
     Active Substance: SOFOSBUVIR\VELPATASVIR\VOXILAPREVIR
     Indication: HEPATITIS C
     Dosage: OTHER DOSE: 400-100-100
     Route: 048
     Dates: start: 201911

REACTIONS (4)
  - Pneumonia [None]
  - Musculoskeletal stiffness [None]
  - Joint stiffness [None]
  - Stiff leg syndrome [None]

NARRATIVE: CASE EVENT DATE: 20191224
